FAERS Safety Report 19060516 (Version 6)
Quarter: 2021Q3

REPORT INFORMATION
  Report Type: Report from Study
  Country: US (occurrence: US)
  Receive Date: 20210326
  Receipt Date: 20210920
  Transmission Date: 20211014
  Serious: No
  Sender: FDA-Public Use
  Company Number: NVSC2021US061785

PATIENT
  Age: 82 Year
  Sex: Female

DRUGS (1)
  1. KESIMPTA [Suspect]
     Active Substance: OFATUMUMAB
     Indication: PRODUCT USED FOR UNKNOWN INDICATION
     Dosage: 20 MG, QMO (SOLUTION) (BENEATH THE SKIN, USUALLY VIA INJECTION)
     Route: 058
     Dates: start: 20210312

REACTIONS (10)
  - Asthenia [Recovering/Resolving]
  - Swelling of eyelid [Recovering/Resolving]
  - Vision blurred [Recovering/Resolving]
  - Scar [Recovered/Resolved]
  - Feeling hot [Recovering/Resolving]
  - Blister [Recovering/Resolving]
  - Product dose omission issue [Not Recovered/Not Resolved]
  - Hot flush [Recovering/Resolving]
  - Somnolence [Recovering/Resolving]
  - Herpes zoster [Recovering/Resolving]

NARRATIVE: CASE EVENT DATE: 20210313
